FAERS Safety Report 25661478 (Version 2)
Quarter: 2025Q4

REPORT INFORMATION
  Report Type: Spontaneous
  Country: CO (occurrence: CO)
  Receive Date: 20250808
  Receipt Date: 20251002
  Transmission Date: 20260118
  Serious: No
  Sender: PFIZER
  Company Number: CO-PFIZER INC-PV202500094068

PATIENT
  Sex: Male

DRUGS (1)
  1. GENOTROPIN [Suspect]
     Active Substance: SOMATROPIN
     Dosage: 2.0 MG, DAILY
     Route: 058

REACTIONS (4)
  - Device leakage [Unknown]
  - Device information output issue [Unknown]
  - Device mechanical issue [Unknown]
  - Product dose omission issue [Unknown]
